FAERS Safety Report 10083588 (Version 1)
Quarter: 2014Q2

REPORT INFORMATION
  Report Type: Spontaneous
  Country: None (occurrence: None)
  Receive Date: 20140416
  Receipt Date: 20140416
  Transmission Date: 20141212
  Serious: No
  Sender: FDA-Public Use
  Company Number: None

PATIENT
  Age: 22 Year
  Sex: Female
  Weight: 80.74 kg

DRUGS (1)
  1. PARAGUARD [Suspect]

REACTIONS (2)
  - Menorrhagia [None]
  - Pregnancy with contraceptive device [None]
